FAERS Safety Report 20507070 (Version 1)
Quarter: 2022Q1

REPORT INFORMATION
  Report Type: Spontaneous
  Country: NL (occurrence: NL)
  Receive Date: 20220223
  Receipt Date: 20220223
  Transmission Date: 20220423
  Serious: Yes (Hospitalization, Other)
  Sender: FDA-Public Use
  Company Number: NL-MLMSERVICE-20210924-3127616-1

PATIENT
  Age: 27 Year
  Sex: Male

DRUGS (5)
  1. SOTALOL HYDROCHLORIDE [Suspect]
     Active Substance: SOTALOL HYDROCHLORIDE
     Indication: Product used for unknown indication
     Dosage: 80 MILLIGRAM(PILL-IN-THE POCKET)
     Route: 048
     Dates: start: 2019
  2. SOTALOL HYDROCHLORIDE [Suspect]
     Active Substance: SOTALOL HYDROCHLORIDE
     Dosage: 80 MILLIGRAM, TWO TIMES A DAY(PILLS) (WHEN NEEDED)
     Route: 048
     Dates: start: 202006
  3. IBUTILIDE [Suspect]
     Active Substance: IBUTILIDE
     Indication: Atrial flutter
     Dosage: 1 MILLIGRAM (1 TOTAL) GIVEN ONCE AS A BOLUS
     Route: 042
     Dates: start: 202006, end: 202006
  4. IBUTILIDE [Suspect]
     Active Substance: IBUTILIDE
     Indication: Prophylaxis
  5. MAGNESIUM [Concomitant]
     Active Substance: MAGNESIUM
     Indication: Prophylaxis
     Dosage: 750 MILLIGRAM
     Route: 042
     Dates: start: 202006

REACTIONS (3)
  - Electrocardiogram QT prolonged [Recovered/Resolved]
  - Electrocardiogram T wave abnormal [Recovered/Resolved]
  - Atrial flutter [Recovered/Resolved]
